FAERS Safety Report 18282112 (Version 1)
Quarter: 2020Q3

REPORT INFORMATION
  Report Type: Spontaneous
  Country: US (occurrence: US)
  Receive Date: 20200918
  Receipt Date: 20200918
  Transmission Date: 20201103
  Serious: Yes (Other)
  Sender: FDA-Public Use
  Company Number: US-TEVA-2020-US-1828670

PATIENT

DRUGS (4)
  1. OXYCODONE [Suspect]
     Active Substance: OXYCODONE
     Route: 065
  2. TRAMADOL. [Suspect]
     Active Substance: TRAMADOL
     Dosage: 400 MILLIGRAM DAILY;
     Route: 065
  3. PERCOCET [Suspect]
     Active Substance: ACETAMINOPHEN\OXYCODONE HYDROCHLORIDE
     Route: 065
  4. TRAMADOL. [Suspect]
     Active Substance: TRAMADOL
     Dosage: 60 MILLIGRAM DAILY;
     Route: 065
     Dates: start: 200203

REACTIONS (9)
  - Emotional disorder [Unknown]
  - Drug dependence [Unknown]
  - Personality change [Unknown]
  - Economic problem [Unknown]
  - Insomnia [Unknown]
  - Bed rest [Unknown]
  - Depression [Unknown]
  - Mental disorder [Unknown]
  - Disturbance in attention [Unknown]
